FAERS Safety Report 9410023 (Version 1)
Quarter: 2013Q3

REPORT INFORMATION
  Report Type: Spontaneous
  Country: AT (occurrence: AT)
  Receive Date: 20130719
  Receipt Date: 20130719
  Transmission Date: 20140515
  Serious: Yes (Life-Threatening, Other)
  Sender: FDA-Public Use
  Company Number: AT-009507513-1307AUT009810

PATIENT
  Age: 65 Year
  Sex: Male
  Weight: 82 kg

DRUGS (9)
  1. JANUVIA [Suspect]
     Indication: TYPE 2 DIABETES MELLITUS
     Dosage: 0.5 DOSAGE FORM, (1/ 2-0-0) 1 DAYS
     Route: 048
     Dates: start: 2012, end: 20121129
  2. JANUVIA [Suspect]
     Dosage: 1 DOSAGE FORM, (1-0-0), 1 DAYS
     Route: 048
     Dates: start: 20120810, end: 2012
  3. TRAJENTA [Suspect]
     Indication: TYPE 2 DIABETES MELLITUS
     Dosage: 5 MG 1, 1 DAYS
     Route: 048
     Dates: start: 20121129, end: 20130514
  4. CO-ENAC [Concomitant]
     Dosage: DOSE DESCRIPTION; UNK
  5. LIORESAL [Concomitant]
     Dosage: DOSE DESCRIPTION; UNK
  6. SIMVASTATIN [Concomitant]
     Dosage: DOSE DESCRIPTION; UNK
  7. METOHEXAL [Concomitant]
     Dosage: DOSE DESCRIPTION; UNK
  8. INSUMAN COMB 15 [Concomitant]
     Dosage: DOSE DESCRIPTION; UNK
  9. AMLODIPINE [Concomitant]
     Dosage: DOSE DESCRIPTION; UNK

REACTIONS (1)
  - Pancreatic carcinoma [Recovered/Resolved with Sequelae]
